FAERS Safety Report 5114861-4 (Version None)
Quarter: 2006Q3

REPORT INFORMATION
  Report Type: 
  Country: None (occurrence: None)
  Receive Date: 20060926
  Receipt Date: 20060922
  Transmission Date: 20061208
  Serious: Yes (Hospitalization)
  Sender: FDA-Public Use
  Company Number: JP-BAYER-200611069BYL

PATIENT
  Age: 75 Year
  Sex: Male

DRUGS (3)
  1. AVELOX [Suspect]
     Indication: PNEUMONIA
     Dosage: TOTAL DAILY DOSE: 400 MG  UNIT DOSE: 400 MG
     Route: 048
     Dates: start: 20060911, end: 20060915
  2. FIRSTCIN [Suspect]
     Indication: PNEUMONIA
     Route: 042
     Dates: start: 20060911, end: 20060915
  3. LOXONIN [Suspect]
     Indication: PNEUMONIA
     Route: 048
     Dates: start: 20060911, end: 20060915

REACTIONS (1)
  - INTERSTITIAL LUNG DISEASE [None]
